FAERS Safety Report 4378543-9 (Version None)
Quarter: 2004Q2

REPORT INFORMATION
  Report Type: 
  Country: None (occurrence: None)
  Receive Date: 20040616
  Receipt Date: 20040326
  Transmission Date: 20050107
  Serious: Yes (Disabling)
  Sender: FDA-Public Use
  Company Number: BE-GLAXOSMITHKLINE-B0328354A

PATIENT
  Age: 2 Year
  Sex: Female
  Weight: 14 kg

DRUGS (4)
  1. VENTOLIN [Suspect]
     Route: 055
  2. ATROVENT [Concomitant]
     Indication: BRONCHITIS
     Route: 055
  3. MEDROL [Concomitant]
     Dosage: 1TAB PER DAY
  4. FLIXOTIDE [Concomitant]
     Dosage: 250MCG TWICE PER DAY
     Route: 055

REACTIONS (1)
  - ALOPECIA [None]
